FAERS Safety Report 11692574 (Version 1)
Quarter: 2015Q4

REPORT INFORMATION
  Report Type: Spontaneous
  Country: US (occurrence: None)
  Receive Date: 20151102
  Receipt Date: 20151102
  Transmission Date: 20160304
  Serious: No
  Sender: FDA-Public Use
  Company Number: None

PATIENT
  Age: 20 Year
  Sex: Female
  Weight: 112 kg

DRUGS (4)
  1. BUPIVICAINE [Suspect]
     Active Substance: BUPIVACAINE
     Indication: PAIN
     Route: 008
     Dates: start: 20151020
  2. EPINEPHRINE. [Concomitant]
     Active Substance: EPINEPHRINE
  3. FENTANYL. [Concomitant]
     Active Substance: FENTANYL
  4. LIDOCAINE. [Concomitant]
     Active Substance: LIDOCAINE

REACTIONS (2)
  - Drug effect decreased [None]
  - Injection site pain [None]

NARRATIVE: CASE EVENT DATE: 20151020
